FAERS Safety Report 9651032 (Version 5)
Quarter: 2014Q2

REPORT INFORMATION
  Report Type: Report from Study
  Country: US (occurrence: US)
  Receive Date: 20131029
  Receipt Date: 20140416
  Transmission Date: 20141212
  Serious: Yes (Other)
  Sender: FDA-Public Use
  Company Number: PHEH2013US005406

PATIENT
  Sex: Female
  Weight: 121.1 kg

DRUGS (3)
  1. EXTAVIA [Suspect]
     Indication: MULTIPLE SCLEROSIS
     Dosage: 0.3 MG, EVERY OTHER DAY
     Route: 058
  2. EXTAVIA [Suspect]
     Dosage: 0.25 MG, EVERY OTHER DAY
     Route: 058
  3. EXTAVIA [Suspect]
     Dosage: 0.3 MG, EVERY OTHER DAY
     Route: 058

REACTIONS (7)
  - Viral infection [Unknown]
  - Hip fracture [Unknown]
  - Fall [Unknown]
  - Blepharospasm [Unknown]
  - Vertigo [Unknown]
  - Nausea [Unknown]
  - Dizziness [Unknown]
